FAERS Safety Report 19477359 (Version 1)
Quarter: 2021Q2

REPORT INFORMATION
  Report Type: Other
  Country: CA (occurrence: CA)
  Receive Date: 20210630
  Receipt Date: 20210630
  Transmission Date: 20210717
  Serious: Yes (Other)
  Sender: FDA-Public Use
  Company Number: CA-ROCHE-2856956

PATIENT
  Sex: Male

DRUGS (3)
  1. PANTOPRAZOLE [Concomitant]
     Active Substance: PANTOPRAZOLE
  2. INDAPAMIDE. [Concomitant]
     Active Substance: INDAPAMIDE
  3. OCREVUS [Suspect]
     Active Substance: OCRELIZUMAB
     Indication: PRIMARY PROGRESSIVE MULTIPLE SCLEROSIS
     Dosage: CONCENTRATE FOR INTRAVENOUS INFUSION?DAY 0, 14 THEN 600 MG Q6M?300 MG AT DAY 0 AND 14, THEN 600 MG E
     Route: 042
     Dates: start: 20180726

REACTIONS (6)
  - Peripheral swelling [Recovered/Resolved]
  - Skin discolouration [Not Recovered/Not Resolved]
  - Rib fracture [Recovering/Resolving]
  - Gait disturbance [Not Recovered/Not Resolved]
  - Balance disorder [Not Recovered/Not Resolved]
  - Fall [Unknown]
